FAERS Safety Report 15468547 (Version 2)
Quarter: 2018Q4

REPORT INFORMATION
  Report Type: Spontaneous
  Country: US (occurrence: US)
  Receive Date: 20181005
  Receipt Date: 20181116
  Transmission Date: 20190204
  Serious: No
  Sender: FDA-Public Use
  Company Number: US-SA-2018SA273546

PATIENT
  Age: 66 Year
  Sex: Male
  Weight: 76 kg

DRUGS (1)
  1. PRALUENT [Suspect]
     Active Substance: ALIROCUMAB
     Indication: BLOOD CHOLESTEROL INCREASED
     Dosage: 75 MG, QOW
     Route: 058
     Dates: start: 20180927

REACTIONS (3)
  - Underdose [Unknown]
  - Device use issue [Unknown]
  - Injection site haemorrhage [Unknown]

NARRATIVE: CASE EVENT DATE: 20180927
